FAERS Safety Report 9960339 (Version 2)
Quarter: 2014Q1

REPORT INFORMATION
  Report Type: Spontaneous
  Country: US (occurrence: US)
  Receive Date: 20140305
  Receipt Date: 20140305
  Transmission Date: 20141002
  Serious: No
  Sender: FDA-Public Use
  Company Number: US-SHIRE-ALL1-2013-07423

PATIENT
  Age: 52 Year
  Sex: Female
  Weight: 81.63 kg

DRUGS (5)
  1. VYVANSE [Suspect]
     Indication: PRODUCT USED FOR UNKNOWN INDICATION
     Dosage: 30 MG, 1X/DAY:QD
     Route: 048
     Dates: start: 20131016
  2. VYVANSE [Suspect]
     Dosage: 40 MG, UNKNOWN
     Route: 048
  3. VYVANSE [Suspect]
     Dosage: 30 MG, UNKNOWN
     Route: 048
  4. VYVANSE [Suspect]
     Dosage: 40 MG, 1X/DAY:QD
     Route: 048
     Dates: start: 20140114
  5. AMITRIPTYLINE [Concomitant]
     Indication: PRODUCT USED FOR UNKNOWN INDICATION
     Dosage: UNK UNK (ONE TO TWO 50 MG), 1X/DAY:QD
     Route: 048
     Dates: start: 20131212

REACTIONS (2)
  - Tachycardia [Recovered/Resolved]
  - Hypertension [Unknown]
